FAERS Safety Report 14942993 (Version 4)
Quarter: 2018Q3

REPORT INFORMATION
  Report Type: Report from Study
  Country: DE (occurrence: DE)
  Receive Date: 20180528
  Receipt Date: 20180803
  Transmission Date: 20181010
  Serious: Yes (Hospitalization)
  Sender: FDA-Public Use
  Company Number: DE-ROCHE-2128332

PATIENT
  Age: 63 Year
  Sex: Male
  Weight: 86.5 kg

DRUGS (9)
  1. EUTHYROX [Concomitant]
     Active Substance: LEVOTHYROXINE SODIUM
     Route: 048
  2. ALLOPURINOL. [Concomitant]
     Active Substance: ALLOPURINOL
     Route: 048
     Dates: start: 20171128, end: 20180518
  3. VENETOCLAX. [Suspect]
     Active Substance: VENETOCLAX
     Indication: CHRONIC LYMPHOCYTIC LEUKAEMIA
     Dosage: DATE OF LAST DOSE PRIOR TO SAE: 15/MAY/2018: 4000 MG?20 MG ONCE IN 28DAYS (CYCLE 1: 20 MG (2 TABLETS
     Route: 048
     Dates: start: 20171219, end: 20180515
  4. IBRUTINIB [Suspect]
     Active Substance: IBRUTINIB
     Indication: CHRONIC LYMPHOCYTIC LEUKAEMIA
     Dosage: DATE OF MOST RECENT DOSE PRIOR TO SAE: 15/MAY/2018?CYCLES 1?12: 420 MG, DAY 1?28 ONCE IN 28 DAYS AS
     Route: 048
     Dates: start: 20171128, end: 20180515
  5. METAMIZOL [Concomitant]
     Active Substance: METAMIZOLE SODIUM
     Route: 048
     Dates: start: 20171212
  6. L?THYROXIN [Concomitant]
     Active Substance: LEVOTHYROXINE SODIUM
     Route: 065
  7. COTRIM FORTE [Concomitant]
     Active Substance: SULFAMETHOXAZOLE\TRIMETHOPRIM
     Route: 048
     Dates: start: 20171228, end: 20180518
  8. ACICLOVIR [Concomitant]
     Active Substance: ACYCLOVIR
     Route: 048
     Dates: start: 20171128, end: 20180518
  9. OBINUTUZUMAB. [Suspect]
     Active Substance: OBINUTUZUMAB
     Indication: CHRONIC LYMPHOCYTIC LEUKAEMIA
     Dosage: 1000 MG ONCE IN 28 DAYS (Q28D) (CYCLE 1: 100 MG, DAY 1 (D1); 900 MG, D2; 1000 MG, D8+15 AS PER PROTO
     Route: 042
     Dates: start: 20171128, end: 20180418

REACTIONS (1)
  - Pulmonary fibrosis [Not Recovered/Not Resolved]

NARRATIVE: CASE EVENT DATE: 20180518
